FAERS Safety Report 4323595-5 (Version None)
Quarter: 2004Q1

REPORT INFORMATION
  Report Type: 
  Country: None (occurrence: None)
  Receive Date: 20040323
  Receipt Date: 20040204
  Transmission Date: 20041129
  Serious: No
  Sender: FDA-Public Use
  Company Number: US_0402100494

PATIENT
  Age: 75 Year
  Sex: Male
  Weight: 95 kg

DRUGS (11)
  1. CIALIS [Suspect]
     Indication: ERECTILE DYSFUNCTION
     Dosage: 20 MG
     Dates: start: 20040204
  2. OLANZAPINE [Suspect]
     Indication: ANTIDEPRESSANT THERAPY
     Dosage: 10 MG/DAY
  3. SENNOSIDE A [Concomitant]
  4. LISINOPRIL [Concomitant]
  5. HYDROCHLOROTHIAZIDE [Concomitant]
  6. METFORMIN HCL [Concomitant]
  7. LORAZEPAM [Concomitant]
  8. GLYBURIDE [Concomitant]
  9. FELODIPINE [Concomitant]
  10. ACETYLSALICYLIC ACID SRT [Concomitant]
  11. SINGULAIR [Concomitant]

REACTIONS (1)
  - DRUG INEFFECTIVE [None]
